FAERS Safety Report 9863853 (Version 1)
Quarter: 2014Q1

REPORT INFORMATION
  Report Type: Spontaneous
  Country: BR (occurrence: BR)
  Receive Date: 20140203
  Receipt Date: 20140203
  Transmission Date: 20141002
  Serious: Yes (Other)
  Sender: FDA-Public Use
  Company Number: BR-GLAXOSMITHKLINE-A1059310A

PATIENT
  Age: 62 Year
  Sex: Male
  Weight: 64 kg

DRUGS (2)
  1. COMBODART [Suspect]
     Indication: PROSTATIC DISORDER
     Dosage: 1CAP PER DAY
     Route: 048
     Dates: start: 20140113
  2. ENALAPRIL [Concomitant]

REACTIONS (4)
  - Urinary retention [Recovering/Resolving]
  - Palpitations [Recovered/Resolved]
  - Nervousness [Recovered/Resolved]
  - Nasal obstruction [Recovering/Resolving]
